FAERS Safety Report 24379261 (Version 1)
Quarter: 2024Q3

REPORT INFORMATION
  Report Type: Spontaneous
  Country: US (occurrence: US)
  Receive Date: 20240930
  Receipt Date: 20240930
  Transmission Date: 20241017
  Serious: No
  Sender: ROCHE
  Company Number: US-ROCHE-10000085930

PATIENT
  Sex: Female
  Weight: 43.09 kg

DRUGS (1)
  1. SOMATROPIN [Suspect]
     Active Substance: SOMATROPIN
     Indication: Hypopituitarism
     Dosage: THERAPY IS ONGOING
     Route: 058
     Dates: start: 20160525

REACTIONS (2)
  - Back pain [Unknown]
  - Off label use [Unknown]
